FAERS Safety Report 10007867 (Version 3)
Quarter: 2014Q2

REPORT INFORMATION
  Report Type: Spontaneous
  Country: US (occurrence: US)
  Receive Date: 20140313
  Receipt Date: 20140620
  Transmission Date: 20141212
  Serious: Yes (Disabling, Other)
  Sender: FDA-Public Use
  Company Number: US-BAYER-2014-037122

PATIENT
  Age: 60 Year
  Sex: Male

DRUGS (10)
  1. AVELOX [Suspect]
     Indication: BRONCHITIS
     Dosage: UNK
     Dates: start: 20140220
  2. DIAMOX [Suspect]
     Indication: GLAUCOMA
     Dosage: ABOUT 250-375 MG A DAY FOR MOST OF THE DAYS
     Dates: start: 201304, end: 201312
  3. DIAMOX [Suspect]
     Indication: GLAUCOMA
     Dosage: 750 MG A DAY
     Dates: start: 20140101, end: 201402
  4. DIAMOX [Suspect]
     Indication: GLAUCOMA
     Dosage: ABOUT 500 MG PER DAY
     Dates: start: 20140205, end: 20140219
  5. DIAMOX [Suspect]
     Indication: GLAUCOMA
     Dosage: ABOUT 375 MG/D
     Dates: start: 201402
  6. DIAMOX [Suspect]
     Indication: GLAUCOMA
     Dosage: 625 OR 750 FOR ONE OF THE
     Dates: start: 20140220, end: 20140221
  7. ADVAIR [Concomitant]
     Dosage: UNK
  8. OMEPRAZOLE [Concomitant]
     Dosage: 400 MG, BID
  9. MEDROL [Concomitant]
  10. DOXYCYCLINE [Concomitant]
     Indication: BRONCHITIS BACTERIAL
     Dosage: UNK
     Dates: start: 201402

REACTIONS (3)
  - Deafness [Not Recovered/Not Resolved]
  - Tinnitus [None]
  - Deafness [Not Recovered/Not Resolved]
